FAERS Safety Report 13409188 (Version 2)
Quarter: 2017Q4

REPORT INFORMATION
  Report Type: Spontaneous
  Country: US (occurrence: US)
  Receive Date: 20170406
  Receipt Date: 20171123
  Transmission Date: 20180320
  Serious: No
  Sender: FDA-Public Use
  Company Number: US-JNJFOC-20170116705

PATIENT
  Sex: Male

DRUGS (6)
  1. RISPERDAL [Suspect]
     Active Substance: RISPERIDONE
     Indication: ANGER
     Dosage: IN VARYING DOSE OF 1 MG AND 0.5 MG
     Route: 048
     Dates: start: 20010703, end: 20020305
  2. RISPERDAL [Suspect]
     Active Substance: RISPERIDONE
     Indication: AGGRESSION
     Dosage: IN VARYING DOSE OF 1 MG AND 0.5 MG
     Route: 048
     Dates: start: 20010703, end: 20020305
  3. RISPERDAL [Suspect]
     Active Substance: RISPERIDONE
     Indication: INSOMNIA
     Dosage: IN VARYING DOSE OF 1 MG AND 0.5 MG
     Route: 048
     Dates: start: 20010703, end: 20020305
  4. RISPERDAL [Suspect]
     Active Substance: RISPERIDONE
     Indication: AGGRESSION
     Dosage: VARYING DOSE OF 1 MG AND 0.5 MG
     Route: 048
     Dates: start: 20031007, end: 20050316
  5. RISPERDAL [Suspect]
     Active Substance: RISPERIDONE
     Indication: INSOMNIA
     Dosage: VARYING DOSE OF 1 MG AND 0.5 MG
     Route: 048
     Dates: start: 20031007, end: 20050316
  6. RISPERDAL [Suspect]
     Active Substance: RISPERIDONE
     Indication: ANGER
     Dosage: VARYING DOSE OF 1 MG AND 0.5 MG
     Route: 048
     Dates: start: 20031007, end: 20050316

REACTIONS (3)
  - Weight increased [Unknown]
  - Gynaecomastia [Unknown]
  - Emotional disorder [Unknown]
